FAERS Safety Report 12099941 (Version 1)
Quarter: 2016Q1

REPORT INFORMATION
  Report Type: Report from Study
  Country: CO (occurrence: CO)
  Receive Date: 20160222
  Receipt Date: 20160222
  Transmission Date: 20160526
  Serious: Yes (Hospitalization, Other)
  Sender: FDA-Public Use
  Company Number: CO-JNJFOC-20151204344

PATIENT
  Age: 50 Year
  Sex: Female
  Weight: 56 kg

DRUGS (1)
  1. SIMPONI [Suspect]
     Active Substance: GOLIMUMAB
     Indication: ANKYLOSING SPONDYLITIS
     Route: 058
     Dates: start: 20121122

REACTIONS (7)
  - Biopsy spinal cord [Unknown]
  - Pain [Recovered/Resolved with Sequelae]
  - Ecchymosis [Not Recovered/Not Resolved]
  - Fatigue [Recovered/Resolved with Sequelae]
  - Asthenia [Recovered/Resolved with Sequelae]
  - Back disorder [Recovered/Resolved with Sequelae]
  - Varicose vein [Recovered/Resolved]

NARRATIVE: CASE EVENT DATE: 20150916
